FAERS Safety Report 9290739 (Version 1)
Quarter: 2013Q2

REPORT INFORMATION
  Report Type: Report from Study
  Country: AR (occurrence: AR)
  Receive Date: 20130515
  Receipt Date: 20130515
  Transmission Date: 20140414
  Serious: Yes (Other)
  Sender: FDA-Public Use
  Company Number: PHHY2013AR048230

PATIENT
  Sex: Female

DRUGS (2)
  1. EXFORGE D [Suspect]
     Indication: HYPERTENSION
     Dosage: 1 DF DAILY
     Route: 048
     Dates: start: 20130511
  2. EXFORGE D [Suspect]
     Dosage: 0.5 DF, BID ( IN THE MORNING AND IN THE AFTERNOON)

REACTIONS (5)
  - Fall [Recovered/Resolved]
  - Syncope [Recovered/Resolved]
  - Feeling hot [Recovered/Resolved]
  - Contusion [Not Recovered/Not Resolved]
  - Wrong technique in drug usage process [Unknown]
